FAERS Safety Report 9398638 (Version 1)
Quarter: 2013Q3

REPORT INFORMATION
  Report Type: Spontaneous
  Country: US (occurrence: US)
  Receive Date: 20130712
  Receipt Date: 20130712
  Transmission Date: 20140515
  Serious: Yes (Hospitalization)
  Sender: FDA-Public Use
  Company Number: US-009507513-1307USA005336

PATIENT
  Age: 86 Year
  Sex: Female

DRUGS (1)
  1. MIRALAX [Suspect]
     Indication: FAECALOMA
     Dosage: UNK
     Dates: start: 201301

REACTIONS (2)
  - Hospitalisation [Unknown]
  - Off label use [Unknown]
